FAERS Safety Report 11398201 (Version 3)
Quarter: 2016Q1

REPORT INFORMATION
  Report Type: Spontaneous
  Country: CA (occurrence: CA)
  Receive Date: 20150820
  Receipt Date: 20160201
  Transmission Date: 20160525
  Serious: Yes (Other)
  Sender: FDA-Public Use
  Company Number: CA-ROCHE-1623559

PATIENT
  Sex: Female

DRUGS (6)
  1. FLUDARABINE [Suspect]
     Active Substance: FLUDARABINE PHOSPHATE
     Indication: MANTLE CELL LYMPHOMA
     Dosage: THERAPY DURATION: 168 DAYS
     Route: 065
  2. TREANDA [Suspect]
     Active Substance: BENDAMUSTINE HYDROCHLORIDE
     Indication: MANTLE CELL LYMPHOMA
     Dosage: THERAPY DURATION: 206 DAYS
     Route: 042
  3. SIMVASTATIN. [Concomitant]
     Active Substance: SIMVASTATIN
  4. RITUXAN [Suspect]
     Active Substance: RITUXIMAB
     Indication: MANTLE CELL LYMPHOMA
     Dosage: THERAPY DURATION: 206 DAYS
     Route: 042
  5. CYCLOPHOSPHAMIDE. [Suspect]
     Active Substance: CYCLOPHOSPHAMIDE
     Indication: MANTLE CELL LYMPHOMA
     Dosage: THERAPY DURATION: 168 DAYS
     Route: 048
  6. AVASTIN [Concomitant]
     Active Substance: BEVACIZUMAB
     Route: 065

REACTIONS (2)
  - Mantle cell lymphoma recurrent [Unknown]
  - Off label use [Unknown]
